FAERS Safety Report 4919986-1 (Version None)
Quarter: 2006Q1

REPORT INFORMATION
  Report Type: 
  Country: None (occurrence: None)
  Receive Date: 20060223
  Receipt Date: 20060216
  Transmission Date: 20060701
  Serious: Yes (Other)
  Sender: FDA-Public Use
  Company Number: US-BRISTOL-MYERS SQUIBB COMPANY-13287511

PATIENT

DRUGS (1)
  1. TEQUIN [Suspect]
     Route: 042
     Dates: start: 20060214

REACTIONS (1)
  - HYPOGLYCAEMIA [None]
